FAERS Safety Report 8034522 (Version 3)
Quarter: 2013Q2

REPORT INFORMATION
  Report Type: Spontaneous
  Country: US (occurrence: None)
  Receive Date: 20110707
  Receipt Date: 20120705
  Transmission Date: 20140414
  Serious: Yes (Hospitalization, Other)
  Sender: FDA-Public Use
  Company Number: US-CYPR-2011-000012

PATIENT
  Age: 58 Year
  Sex: Male
  Weight: 82.56 kg

DRUGS (16)
  1. CLOPIDOGREL [Suspect]
     Indication: ANTIPLATELET THERAPY
     Route: 048
     Dates: start: 20110309
  2. ASPIRIN [Suspect]
     Indication: CORONARY ARTERY DISEASE
     Dosage: (81 MG QD ORAL), (325 MG QD ORAL)
     Route: 048
     Dates: start: 20100106, end: 20110306
  3. COZAAR [Concomitant]
  4. ISOSORBIDE MONONITRATE [Concomitant]
  5. ATORVASTATIN [Concomitant]
  6. TRICOR [Concomitant]
  7. PREVACID [Concomitant]
  8. NOVOLIN 70/30 [Concomitant]
  9. FEXOFENADINE [Concomitant]
  10. GABAPENTIN [Concomitant]
  11. VITAMIN D [Concomitant]
  12. CALCIUM CARBONATE [Concomitant]
  13. FISH OIL [Concomitant]
  14. METFORMIN HYDROCHLORIDE [Concomitant]
  15. CARVEDILOL [Concomitant]
  16. CYPHER STENT [Concomitant]

REACTIONS (4)
  - Inflammation [None]
  - Mass [None]
  - Coronary artery stenosis [None]
  - Coronary artery disease [None]
